FAERS Safety Report 15820940 (Version 1)
Quarter: 2018Q4

REPORT INFORMATION
  Report Type: Spontaneous
  Country: US (occurrence: US)
  Receive Date: 20181217
  Receipt Date: 20181217
  Transmission Date: 20190205
  Serious: Yes (Disabling, Other)
  Sender: FDA-Public Use
  Company Number: None

PATIENT
  Age: 86 Year
  Sex: Female
  Weight: 61.23 kg

DRUGS (2)
  1. FISH OIL [Concomitant]
     Active Substance: FISH OIL
  2. PREMARIN [Suspect]
     Active Substance: ESTROGENS, CONJUGATED
     Indication: MENOPAUSE
     Dosage: 1 CAPSULE SP14398, 1 TABLET NO. 866 DAILY, BY MOUTH
     Route: 048
     Dates: start: 197101, end: 1976

REACTIONS (11)
  - Disability [None]
  - Allergic reaction to excipient [None]
  - Product label issue [None]
  - Oral disorder [None]
  - Gingival disorder [None]
  - Cushingoid [None]
  - Toxicity to various agents [None]
  - Multiple allergies [None]
  - Poliomyelitis [None]
  - Condition aggravated [None]
  - Legal problem [None]

NARRATIVE: CASE EVENT DATE: 197104
